FAERS Safety Report 4704247-6 (Version None)
Quarter: 2005Q2

REPORT INFORMATION
  Report Type: 
  Country: None (occurrence: None)
  Receive Date: 20050630
  Receipt Date: 20050620
  Transmission Date: 20051028
  Serious: Yes (Hospitalization)
  Sender: FDA-Public Use
  Company Number: PHRM2005FR01904

PATIENT
  Age: 72 Year
  Sex: Female

DRUGS (1)
  1. GLEEVEC [Suspect]
     Indication: CHRONIC MYELOID LEUKAEMIA
     Route: 048
     Dates: start: 20050413, end: 20050525

REACTIONS (14)
  - ARRHYTHMIA [None]
  - ASPIRATION PLEURAL CAVITY [None]
  - ATRIAL FIBRILLATION [None]
  - CARDIAC FAILURE [None]
  - CARDIOMYOPATHY [None]
  - CEREBRAL ISCHAEMIA [None]
  - COUGH [None]
  - DYSPNOEA [None]
  - HEMIPLEGIA [None]
  - OEDEMA PERIPHERAL [None]
  - PERICARDIAL EFFUSION [None]
  - PERICARDITIS [None]
  - PLEURAL EFFUSION [None]
  - PLEURISY [None]
